FAERS Safety Report 11847778 (Version 1)
Quarter: 2015Q4

REPORT INFORMATION
  Report Type: Spontaneous
  Country: FR (occurrence: FR)
  Receive Date: 20151217
  Receipt Date: 20151217
  Transmission Date: 20160305
  Serious: Yes (Other)
  Sender: FDA-Public Use
  Company Number: FR-CONCORDIA PHARMACEUTICALS INC.-CO-PL-FR-2015-415

PATIENT
  Age: 48 Year
  Sex: Female

DRUGS (5)
  1. NPLATE [Concomitant]
     Active Substance: ROMIPLOSTIM
     Dates: start: 20140924
  2. CORTANCYL [Concomitant]
     Active Substance: PREDNISONE
  3. PLAQUENIL [Suspect]
     Active Substance: HYDROXYCHLOROQUINE SULFATE
     Indication: SYSTEMIC LUPUS ERYTHEMATOSUS
     Route: 048
     Dates: start: 201405, end: 20141110
  4. CACIT VITAMINE D3 [Concomitant]
     Active Substance: CALCIUM CARBONATE\CHOLECALCIFEROL
  5. REVOLADE [Concomitant]
     Active Substance: ELTROMBOPAG
     Dates: end: 20140919

REACTIONS (1)
  - Sudden hearing loss [Recovered/Resolved]

NARRATIVE: CASE EVENT DATE: 20141110
